FAERS Safety Report 25240440 (Version 2)
Quarter: 2025Q2

REPORT INFORMATION
  Report Type: Spontaneous
  Country: AT (occurrence: AT)
  Receive Date: 20250425
  Receipt Date: 20250509
  Transmission Date: 20250717
  Serious: Yes (Other)
  Sender: ALEXION PHARMACEUTICALS
  Company Number: AT-ASTRAZENECA-202504EEA019595AT

PATIENT

DRUGS (4)
  1. BENRALIZUMAB [Suspect]
     Active Substance: BENRALIZUMAB
     Indication: Asthma
     Dosage: UNK, Q4W
     Route: 065
  2. BENRALIZUMAB [Suspect]
     Active Substance: BENRALIZUMAB
     Indication: Chronic rhinosinusitis with nasal polyps
  3. BENRALIZUMAB [Suspect]
     Active Substance: BENRALIZUMAB
     Indication: Lung infiltration
  4. BENRALIZUMAB [Suspect]
     Active Substance: BENRALIZUMAB
     Indication: Asthma

REACTIONS (19)
  - Obstructive airways disorder [Unknown]
  - Eosinophilic myocarditis [Unknown]
  - Eosinophilic granulomatosis with polyangiitis [Unknown]
  - Vasculitis [Unknown]
  - Lung disorder [Unknown]
  - Cardiomyopathy [Unknown]
  - Pulmonary alveolar haemorrhage [Unknown]
  - Purpura [Unknown]
  - Antineutrophil cytoplasmic antibody positive [Unknown]
  - Dyspnoea [Unknown]
  - Retinal artery occlusion [Unknown]
  - Drug effect less than expected [Unknown]
  - Blindness [Unknown]
  - Rhinitis [Unknown]
  - Spirometry abnormal [Unknown]
  - C-reactive protein increased [Unknown]
  - Leukocytosis [Unknown]
  - Infection [Unknown]
  - Lung infiltration [Unknown]
